FAERS Safety Report 5342428-1 (Version None)
Quarter: 2007Q2

REPORT INFORMATION
  Report Type: 
  Country: None (occurrence: None)
  Receive Date: 20070601
  Receipt Date: 20070524
  Transmission Date: 20071010
  Serious: Yes (Hospitalization, Other)
  Sender: FDA-Public Use
  Company Number: US-PFIZER INC-2007038540

PATIENT
  Sex: Female

DRUGS (12)
  1. PREDNISONE TAB [Suspect]
     Indication: CROHN'S DISEASE
  2. CHANTIX [Suspect]
     Indication: EX-SMOKER
  3. ZITHROMAX [Suspect]
     Indication: PNEUMONIA
     Dates: start: 20070101, end: 20070101
  4. AMOXICILLIN [Suspect]
     Indication: PNEUMONIA
  5. DRUG, UNSPECIFIED [Suspect]
  6. PREVACID [Suspect]
     Indication: GASTROOESOPHAGEAL REFLUX DISEASE
  7. PRILOSEC [Suspect]
     Indication: GASTROOESOPHAGEAL REFLUX DISEASE
  8. ACETYLSALICYLIC ACID SRT [Suspect]
     Indication: CARDIOVASCULAR EVENT PROPHYLAXIS
  9. DRUG, UNSPECIFIED [Concomitant]
     Indication: CROHN'S DISEASE
  10. ASACOL [Concomitant]
     Indication: CROHN'S DISEASE
  11. PRILOSEC [Concomitant]
  12. ACETYLSALICYLIC ACID SRT [Concomitant]

REACTIONS (12)
  - ANXIETY [None]
  - BONE DISORDER [None]
  - CROHN'S DISEASE [None]
  - DRUG INEFFECTIVE [None]
  - FATIGUE [None]
  - GASTROOESOPHAGEAL REFLUX DISEASE [None]
  - INSOMNIA [None]
  - MALABSORPTION [None]
  - MUSCLE ATROPHY [None]
  - NAUSEA [None]
  - PNEUMONIA [None]
  - PSYCHOMOTOR HYPERACTIVITY [None]
